FAERS Safety Report 24919997 (Version 2)
Quarter: 2025Q1

REPORT INFORMATION
  Report Type: Spontaneous
  Country: JP (occurrence: JP)
  Receive Date: 20250204
  Receipt Date: 20250214
  Transmission Date: 20250409
  Serious: Yes (Death, Other)
  Sender: TEVA
  Company Number: JP-TEVA-VS-3292016

PATIENT
  Sex: Male

DRUGS (12)
  1. CARBOPLATIN [Suspect]
     Active Substance: CARBOPLATIN
     Indication: Non-small cell lung cancer stage IV
     Route: 065
  2. URSODIOL [Suspect]
     Active Substance: URSODIOL
     Indication: Immune-mediated hepatitis
     Route: 065
  3. METHYLPREDNISOLONE [Suspect]
     Active Substance: METHYLPREDNISOLONE
     Indication: Immune-mediated hepatitis
     Dosage: RECEIVED THREE PULSE DOSES
     Route: 065
  4. PEMBROLIZUMAB [Suspect]
     Active Substance: PEMBROLIZUMAB
     Indication: Non-small cell lung cancer stage IV
     Route: 065
  5. PEMETREXED [Suspect]
     Active Substance: PEMETREXED
     Indication: Non-small cell lung cancer stage IV
     Route: 065
  6. CEFAZOLIN [Suspect]
     Active Substance: CEFAZOLIN
     Indication: Evidence based treatment
     Route: 065
  7. GANCICLOVIR [Concomitant]
     Active Substance: GANCICLOVIR
     Indication: Evidence based treatment
     Route: 065
  8. MYCOPHENOLATE MOFETIL [Suspect]
     Active Substance: MYCOPHENOLATE MOFETIL
     Indication: Immune-mediated hepatitis
     Route: 065
  9. AZATHIOPRINE [Suspect]
     Active Substance: AZATHIOPRINE
     Indication: Immune-mediated hepatitis
     Route: 065
  10. PREDNISOLONE [Suspect]
     Active Substance: PREDNISOLONE
     Indication: Immune-mediated enterocolitis
     Route: 065
  11. PREDNISOLONE [Suspect]
     Active Substance: PREDNISOLONE
     Indication: Immune-mediated enterocolitis
     Route: 065
  12. PREDNISOLONE [Suspect]
     Active Substance: PREDNISOLONE
     Indication: Immune-mediated enterocolitis
     Route: 065

REACTIONS (7)
  - Immune-mediated lung disease [Unknown]
  - Immune-mediated enterocolitis [Unknown]
  - Sepsis [Fatal]
  - Immune-mediated hepatitis [Unknown]
  - Enteritis [Fatal]
  - Drug ineffective [Fatal]
  - Escherichia infection [Fatal]
